FAERS Safety Report 24743164 (Version 1)
Quarter: 2024Q4

REPORT INFORMATION
  Report Type: Spontaneous
  Country: US (occurrence: US)
  Receive Date: 20241217
  Receipt Date: 20241217
  Transmission Date: 20250115
  Serious: No
  Sender: KVK-TECH
  Company Number: US-KVK-TECH, INC-20240500048

PATIENT
  Age: 35 Year
  Sex: Female
  Weight: 65.76 kg

DRUGS (3)
  1. DEXMETHYLPHENIDATE HYDROCHLORIDE [Suspect]
     Active Substance: DEXMETHYLPHENIDATE HYDROCHLORIDE
     Indication: Attention deficit hyperactivity disorder
     Dosage: UNKNOWN DOSE, BID
     Route: 065
     Dates: start: 202403, end: 20240521
  2. VITAMINS [Concomitant]
     Active Substance: VITAMINS
     Route: 065
  3. PROBIOTICS NOS [Concomitant]
     Active Substance: PROBIOTICS NOS
     Route: 065

REACTIONS (12)
  - Gastrointestinal disorder [Recovered/Resolved]
  - Feeling abnormal [Recovered/Resolved]
  - Anxiety [Recovered/Resolved]
  - Autoscopy [Unknown]
  - Disturbance in attention [Unknown]
  - Fatigue [Unknown]
  - Irritability [Unknown]
  - Somnolence [Recovered/Resolved]
  - Headache [Recovered/Resolved]
  - Drug ineffective [Unknown]
  - Product substitution issue [Unknown]
  - Therapeutic response changed [Unknown]

NARRATIVE: CASE EVENT DATE: 20240101
